FAERS Safety Report 6849108-1 (Version None)
Quarter: 2010Q3

REPORT INFORMATION
  Report Type: 
  Country: None (occurrence: None)
  Receive Date: 20100716
  Receipt Date: 20071030
  Transmission Date: 20110219
  Serious: No
  Sender: FDA-Public Use
  Company Number: US-PFIZER INC-2007080834

PATIENT
  Sex: Female
  Weight: 72.7 kg

DRUGS (1)
  1. CHANTIX [Suspect]
     Indication: SMOKING CESSATION THERAPY
     Dates: start: 20070901

REACTIONS (4)
  - ABNORMAL DREAMS [None]
  - DRUG DOSE OMISSION [None]
  - FLATULENCE [None]
  - INSOMNIA [None]
